FAERS Safety Report 4423388-4 (Version None)
Quarter: 2004Q3

REPORT INFORMATION
  Report Type: 
  Country: None (occurrence: None)
  Receive Date: 20040806
  Receipt Date: 20040726
  Transmission Date: 20050211
  Serious: Yes (Hospitalization, Other)
  Sender: FDA-Public Use
  Company Number: 2004048650

PATIENT
  Age: 30 Year
  Sex: Male
  Weight: 82 kg

DRUGS (6)
  1. LIPITOR [Suspect]
     Indication: HYPERCHOLESTEROLAEMIA
     Dosage: 10 MG (10 MG 1 IN 1 D, ORAL)
     Route: 048
     Dates: start: 20040320, end: 20040716
  2. TACROLIMUS (TACROLIMUS) [Concomitant]
  3. CLIEXETIL (CANDESARTAN CILEXETIL) [Concomitant]
  4. TRAMADOL HCL [Concomitant]
  5. METHYLPREDNISOLONE [Concomitant]
  6. SIROLIMUS(SIROLIMUS) [Concomitant]

REACTIONS (1)
  - LEUKOPENIA [None]
